FAERS Safety Report 23128916 (Version 2)
Quarter: 2023Q4

REPORT INFORMATION
  Report Type: Other
  Country: US (occurrence: None)
  Receive Date: 20231031
  Receipt Date: 20231101
  Transmission Date: 20240109
  Serious: Yes (Death)
  Sender: FDA-Public Use
  Company Number: US-ROCHE-3448602

PATIENT
  Age: 72 Year
  Sex: Female
  Weight: 52.664 kg

DRUGS (12)
  1. HERCEPTIN [Suspect]
     Active Substance: TRASTUZUMAB
     Indication: Oesophageal carcinoma
     Route: 041
  2. HERCEPTIN [Suspect]
     Active Substance: TRASTUZUMAB
     Indication: Colon cancer
  3. HERCEPTIN [Suspect]
     Active Substance: TRASTUZUMAB
     Indication: Gastric cancer
  4. HERCEPTIN [Suspect]
     Active Substance: TRASTUZUMAB
     Indication: Fallopian tube cancer
  5. SODIUM CHLORIDE [Concomitant]
     Active Substance: SODIUM CHLORIDE
  6. ACETAMINOPHEN [Concomitant]
     Active Substance: ACETAMINOPHEN
     Route: 048
  7. DIPHENHYDRAMINE [Concomitant]
     Active Substance: DIPHENHYDRAMINE
     Route: 042
  8. ONDANSETRON [Concomitant]
     Active Substance: ONDANSETRON
     Route: 042
  9. PALONOSETRON [Concomitant]
     Active Substance: PALONOSETRON
     Route: 042
  10. GRANISETRON [Concomitant]
     Active Substance: GRANISETRON
     Route: 042
  11. APREPITANT [Concomitant]
     Active Substance: APREPITANT
     Route: 042
  12. FOSAPREPITANT [Concomitant]
     Active Substance: FOSAPREPITANT
     Route: 042

REACTIONS (2)
  - Death [Fatal]
  - Off label use [Unknown]

NARRATIVE: CASE EVENT DATE: 20231021
